FAERS Safety Report 9051004 (Version 3)
Quarter: 2013Q2

REPORT INFORMATION
  Report Type: Spontaneous
  Country: US (occurrence: US)
  Receive Date: 20130205
  Receipt Date: 20130419
  Transmission Date: 20140414
  Serious: Yes (Other)
  Sender: FDA-Public Use
  Company Number: US-PFIZER INC-2013042300

PATIENT
  Age: 85 Year
  Sex: Female

DRUGS (1)
  1. XALATAN [Suspect]
     Dosage: 0.01 %, ONE DROP IN EACH EYE AT BEDTIME
     Route: 047

REACTIONS (1)
  - Age-related macular degeneration [Unknown]
